FAERS Safety Report 5239174-1 (Version None)
Quarter: 2007Q1

REPORT INFORMATION
  Report Type: 
  Country: None (occurrence: None)
  Receive Date: 20061208
  Receipt Date: 20050912
  Transmission Date: 20070707
  Serious: Yes (Other)
  Sender: FDA-Public Use
  Company Number: 2005UW13425

PATIENT
  Age: 50 Year
  Sex: Male
  Weight: 79.379 kg

DRUGS (9)
  1. CRESTOR [Suspect]
     Indication: LOW DENSITY LIPOPROTEIN INCREASED
     Dosage: 10 MG PO
     Route: 048
     Dates: start: 20040101
  2. POTASSIUM CHLORIDE [Concomitant]
  3. CHLORTHALIDONE [Concomitant]
  4. INSULIN [Concomitant]
  5. CEREZYME [Concomitant]
  6. CARDURA [Concomitant]
  7. PERIOSTAT [Concomitant]
  8. SYNTHROID [Concomitant]
  9. ACTONEL [Concomitant]

REACTIONS (2)
  - CATARACT [None]
  - PARAESTHESIA [None]
